FAERS Safety Report 7094014-3 (Version None)
Quarter: 2010Q4

REPORT INFORMATION
  Report Type: 
  Country: None (occurrence: None)
  Receive Date: 20101101
  Receipt Date: 20101015
  Transmission Date: 20110411
  Serious: Yes (Other)
  Sender: FDA-Public Use
  Company Number: CRC-10-130

PATIENT
  Age: 69 Year
  Sex: Female
  Weight: 65.7716 kg

DRUGS (2)
  1. METOPROLOL TARTRATE [Suspect]
     Indication: HEART RATE IRREGULAR
     Dosage: 25MG QAM + QPM ORALLY
     Route: 048
     Dates: start: 20100710, end: 20100801
  2. LEVOXYL [Concomitant]

REACTIONS (3)
  - PRODUCT SIZE ISSUE [None]
  - RASH GENERALISED [None]
  - URTICARIA [None]
